FAERS Safety Report 17805445 (Version 4)
Quarter: 2020Q3

REPORT INFORMATION
  Report Type: Spontaneous
  Country: US (occurrence: US)
  Receive Date: 20200520
  Receipt Date: 20200925
  Transmission Date: 20201102
  Serious: Yes (Other)
  Sender: FDA-Public Use
  Company Number: US-AMGEN-USASP2020079641

PATIENT
  Age: 5 Year
  Sex: Male

DRUGS (4)
  1. EPOGEN [Suspect]
     Active Substance: ERYTHROPOIETIN
     Dosage: 2000 UNIT, 3 TIMES/WK (EVERY MONDAY, WEDNESDAY, FRIDAY)
     Route: 058
     Dates: start: 20200310
  2. EPOGEN [Suspect]
     Active Substance: ERYTHROPOIETIN
     Dosage: 2500 UNIT, 3 TIMES/WK (EVERY MONDAY, WEDNESDAY, FRIDAY)
     Route: 058
     Dates: start: 20200512
  3. EPOGEN [Suspect]
     Active Substance: ERYTHROPOIETIN
     Indication: NEPHROGENIC ANAEMIA
     Dosage: 2000 UNIT, 3 TIMES/WK (EVERY MONDAY, WEDNESDAY, FRIDAY)
     Route: 058
     Dates: start: 20170627
  4. EPOGEN [Suspect]
     Active Substance: ERYTHROPOIETIN
     Dosage: 1400 UNIT, 3 TIMES/WK (EVERY MONDAY, WEDNESDAY, FRIDAY)
     Route: 058
     Dates: start: 20200108

REACTIONS (2)
  - Haemoglobin decreased [Not Recovered/Not Resolved]
  - Drug ineffective [Not Recovered/Not Resolved]
